FAERS Safety Report 5033423-0 (Version None)
Quarter: 2006Q2

REPORT INFORMATION
  Report Type: 
  Country: None (occurrence: None)
  Receive Date: 20060518
  Receipt Date: 20060120
  Transmission Date: 20061013
  Serious: Yes (Other)
  Sender: FDA-Public Use
  Company Number: 2005146534

PATIENT
  Age: 17 Year
  Sex: Female
  Weight: 106.5953 kg

DRUGS (5)
  1. DEPO-PROVERA [Suspect]
     Indication: CONTRACEPTION
     Dosage: SEE IMAGE
     Dates: start: 20050101, end: 20050101
  2. DEPO-PROVERA [Suspect]
     Indication: CONTRACEPTION
     Dosage: SEE IMAGE
     Dates: start: 20051008, end: 20051008
  3. PROMETRIUM [Suspect]
     Indication: PROGESTERONE DECREASED
     Dosage: (200 MG)
     Dates: start: 20051018, end: 20051027
  4. PRENATAL VITAMINS (ASCORBIC ACID, BIOTIN, MINERALS NOS, NICOTINIC ACID [Concomitant]
  5. PROGESTERONE [Concomitant]

REACTIONS (3)
  - PROGESTERONE DECREASED [None]
  - SWOLLEN TONGUE [None]
  - UNINTENDED PREGNANCY [None]
